FAERS Safety Report 5221592-9 (Version None)
Quarter: 2007Q1

REPORT INFORMATION
  Report Type: 
  Country: None (occurrence: None)
  Receive Date: 20070129
  Receipt Date: 20060928
  Transmission Date: 20070707
  Serious: Yes (Hospitalization, Other)
  Sender: FDA-Public Use
  Company Number: US-RB-2585-2006

PATIENT
  Sex: Female

DRUGS (3)
  1. SUBOXONE [Suspect]
     Route: 064
     Dates: start: 20051208, end: 20060115
  2. SUBOXONE [Suspect]
     Dosage: DOSAGE UNKNOWN
     Route: 064
  3. SUBUTEX [Suspect]
     Route: 064
     Dates: start: 20060116, end: 20060701

REACTIONS (3)
  - DRUG EXPOSURE DURING PREGNANCY [None]
  - PREMATURE BABY [None]
  - SLEEP APNOEA SYNDROME [None]
